FAERS Safety Report 13025246 (Version 3)
Quarter: 2017Q1

REPORT INFORMATION
  Report Type: Spontaneous
  Country: BR (occurrence: BR)
  Receive Date: 20161214
  Receipt Date: 20170215
  Transmission Date: 20170428
  Serious: Yes (Death, Hospitalization, Other)
  Sender: FDA-Public Use
  Company Number: BR-ROCHE-1865643

PATIENT
  Age: 53 Year
  Sex: Female

DRUGS (2)
  1. CITONEURIN [Suspect]
     Active Substance: CYANOCOBALAMIN\PYRIDOXINE HYDROCHLORIDE\THIAMINE
     Indication: IRRITABLE BOWEL SYNDROME
     Route: 030
  2. ACTEMRA [Suspect]
     Active Substance: TOCILIZUMAB
     Indication: RHEUMATOID ARTHRITIS
     Route: 042
     Dates: start: 201608

REACTIONS (7)
  - Death [Fatal]
  - Wrong technique in product usage process [Unknown]
  - Skin necrosis [Unknown]
  - Necrosis [Unknown]
  - Skin infection [Unknown]
  - Irritable bowel syndrome [Unknown]
  - Abdominal pain [Unknown]
